FAERS Safety Report 6197737-3 (Version None)
Quarter: 2009Q2

REPORT INFORMATION
  Report Type: 
  Country: None (occurrence: None)
  Receive Date: 20090521
  Receipt Date: 20090512
  Transmission Date: 20091009
  Serious: Yes (Other)
  Sender: FDA-Public Use
  Company Number: JP-BRISTOL-MYERS SQUIBB COMPANY-14627186

PATIENT
  Age: 62 Year
  Sex: Male

DRUGS (12)
  1. SPRYCEL [Suspect]
     Indication: ACUTE LYMPHOCYTIC LEUKAEMIA RECURRENT
     Route: 048
     Dates: start: 20090414
  2. DAUNORUBICIN HCL [Suspect]
     Dates: start: 20090407, end: 20090409
  3. VINCRISTINE [Suspect]
     Dates: start: 20090407, end: 20090428
  4. PREDNISOLONE [Suspect]
     Dates: start: 20090407, end: 20090416
  5. IMATINIB MESILATE [Concomitant]
     Dates: start: 20071031, end: 20090406
  6. LENOGRASTIM [Concomitant]
     Dates: start: 20090416, end: 20090420
  7. MECOBALAMIN [Concomitant]
  8. OMEPRAZOLE [Concomitant]
  9. SULFAMETHOXAZOLE AND TRIMETHOPRIM [Concomitant]
  10. LEVOFLOXACIN [Concomitant]
     Dosage: HYDRATE FORM
     Dates: start: 20090406, end: 20090419
  11. FLUCONAZOLE [Concomitant]
     Dates: start: 20090406, end: 20090419
  12. CYPROTERONE ACETATE [Concomitant]

REACTIONS (7)
  - ANAEMIA [None]
  - MYALGIA [None]
  - NEUTROPHIL COUNT DECREASED [None]
  - PLATELET COUNT DECREASED [None]
  - RASH [None]
  - VASCULITIS [None]
  - WHITE BLOOD CELL COUNT DECREASED [None]
